FAERS Safety Report 4765415-0 (Version None)
Quarter: 2005Q3

REPORT INFORMATION
  Report Type: 
  Country: None (occurrence: None)
  Receive Date: 20050908
  Receipt Date: 20050908
  Transmission Date: 20060218
  Serious: Yes (Hospitalization)
  Sender: FDA-Public Use
  Company Number: None

PATIENT
  Age: 42 Year
  Sex: Female

DRUGS (4)
  1. TERBUTALINE [Suspect]
     Indication: TOCOLYSIS
     Dosage: 0.25 MG SQ
     Route: 058
     Dates: start: 20050606
  2. PRENATAL VITAMINS [Concomitant]
  3. IRON [Concomitant]
  4. B12 [Concomitant]

REACTIONS (4)
  - DRUG EXPOSURE DURING PREGNANCY [None]
  - HYPERHIDROSIS [None]
  - HYPOTENSION [None]
  - VOMITING [None]
